FAERS Safety Report 19046228 (Version 2)
Quarter: 2021Q2

REPORT INFORMATION
  Report Type: Spontaneous
  Country: DE (occurrence: DE)
  Receive Date: 20210322
  Receipt Date: 20210414
  Transmission Date: 20210717
  Serious: Yes (Other)
  Sender: FDA-Public Use
  Company Number: DE-GRUNENTHAL-2020-108399

PATIENT
  Age: 59 Year
  Sex: Female
  Weight: 66 kg

DRUGS (15)
  1. SATIVEX [Concomitant]
     Active Substance: NABIXIMOLS
     Indication: PRODUCT USED FOR UNKNOWN INDICATION
     Dosage: 8 DOSAGE FORM, 1/DAY
     Route: 055
     Dates: start: 201209
  2. NORSPAN [Concomitant]
     Active Substance: BUPRENORPHINE
     Indication: PRODUCT USED FOR UNKNOWN INDICATION
     Dosage: 10 MICROGRAM, 1/HR
     Route: 062
     Dates: start: 201209
  3. QUTENZA [Suspect]
     Active Substance: CAPSAICIN
     Indication: NEURALGIA
     Dosage: 1 DOSAGE FORM, QUARTERLY
     Route: 003
     Dates: start: 201506, end: 20200723
  4. ALFUZOSIN [Concomitant]
     Active Substance: ALFUZOSIN
     Indication: PRODUCT USED FOR UNKNOWN INDICATION
     Dosage: 5 MILLIGRAM
     Route: 065
  5. PREGABALIN. [Concomitant]
     Active Substance: PREGABALIN
     Indication: PRODUCT USED FOR UNKNOWN INDICATION
     Dosage: 375 MILLIGRAM, 1/DAY
     Route: 065
     Dates: start: 201209
  6. AMBROXOL RETARD [Concomitant]
     Indication: PRODUCT USED FOR UNKNOWN INDICATION
     Dosage: 75 MILLIGRAM, 2/DAY
     Route: 065
     Dates: start: 201209
  7. AMITRIPTYLIN [Concomitant]
     Active Substance: AMITRIPTYLINE
     Indication: PRODUCT USED FOR UNKNOWN INDICATION
     Dosage: 6 DROP, 1/DAY
     Route: 048
     Dates: start: 201209
  8. CURCUMIN LOGES [Suspect]
     Active Substance: CURCUMIN\DIETARY SUPPLEMENT
     Indication: ABDOMINAL PAIN
     Dosage: 1 DOSAGE FORM, 2/DAY
     Route: 065
     Dates: end: 20200505
  9. SALICYLATES NOS [Interacting]
     Active Substance: UNSPECIFIED INGREDIENT
     Indication: PRODUCT USED FOR UNKNOWN INDICATION
     Dosage: UNK
     Route: 065
  10. L?THYROXIN [LEVOTHYROXINE] [Concomitant]
     Active Substance: LEVOTHYROXINE SODIUM
     Indication: AUTOIMMUNE THYROIDITIS
     Dosage: 75 MICROGRAM, 1/DAY
     Route: 065
     Dates: start: 201209
  11. PANTOPRAZOL [PANTOPRAZOLE] [Concomitant]
     Active Substance: PANTOPRAZOLE
     Indication: HYPERCHLORHYDRIA
     Dosage: 40 MILLIGRAM, 1/DAY
     Route: 065
     Dates: start: 201209
  12. PALEXIA [Suspect]
     Active Substance: TAPENTADOL HYDROCHLORIDE
     Indication: PAIN
     Dosage: 400 MILLIGRAM, 1/DAY
     Route: 048
     Dates: start: 201209
  13. MOVICOL [Concomitant]
     Active Substance: POLYETHYLENE GLYCOL 3350\POTASSIUM CHLORIDE\SODIUM BICARBONATE\SODIUM CHLORIDE
     Indication: PRODUCT USED FOR UNKNOWN INDICATION
     Dosage: 1 DOSAGE FORM, 1/DAY
     Route: 048
  14. MOVENTIG [Concomitant]
     Active Substance: NALOXEGOL OXALATE
     Indication: PRODUCT USED FOR UNKNOWN INDICATION
     Dosage: 25 MILLIGRAM, 1/DAY
     Route: 048
     Dates: start: 201209
  15. AMBROXOL [Concomitant]
     Active Substance: AMBROXOL
     Indication: PRODUCT USED FOR UNKNOWN INDICATION
     Dosage: 3 DOSAGE FORM, 1/DAY
     Route: 061
     Dates: start: 201209

REACTIONS (20)
  - Mast cell activation syndrome [Not Recovered/Not Resolved]
  - Abdominal discomfort [Recovered/Resolved]
  - Flatulence [Unknown]
  - Loss of consciousness [Unknown]
  - Hypotension [Unknown]
  - Anaphylactic reaction [Not Recovered/Not Resolved]
  - Hypersensitivity [Recovering/Resolving]
  - Flushing [Unknown]
  - Skin ulcer [Not Recovered/Not Resolved]
  - Drug interaction [Unknown]
  - Abdominal pain lower [Unknown]
  - Metabolic disorder [Unknown]
  - Blood pressure increased [Unknown]
  - Gastrooesophageal reflux disease [Unknown]
  - Heart rate increased [Unknown]
  - Presyncope [Unknown]
  - Drug interaction [Not Recovered/Not Resolved]
  - Burning sensation [Recovered/Resolved]
  - Histamine intolerance [Not Recovered/Not Resolved]
  - Angioedema [Not Recovered/Not Resolved]

NARRATIVE: CASE EVENT DATE: 20200504
